FAERS Safety Report 7671299-3 (Version None)
Quarter: 2011Q3

REPORT INFORMATION
  Report Type: 
  Country: None (occurrence: None)
  Receive Date: 20110809
  Receipt Date: 20110727
  Transmission Date: 20111222
  Serious: No
  Sender: FDA-Public Use
  Company Number: US-B.I. PHARMACEUTICALS,INC./RIDGEFIELD-2011-BP-18601BP

PATIENT
  Sex: Male

DRUGS (11)
  1. PRADAXA [Suspect]
     Indication: ATRIAL FIBRILLATION
     Dosage: 300 MG
     Route: 048
     Dates: start: 20110201
  2. SIMVASTATIN [Concomitant]
     Indication: BLOOD CHOLESTEROL INCREASED
     Dosage: 40 MG
  3. METOPROLOL TARTRATE [Concomitant]
     Indication: HYPERTENSION
     Dosage: 25 MG
  4. VITAMIN-MINERAL COMPOUND TAB [Concomitant]
     Indication: MACULAR DEGENERATION
  5. PROTONIX [Concomitant]
     Indication: PROPHYLAXIS
     Dosage: 40 MG
  6. NIACIN [Concomitant]
     Indication: BLOOD CHOLESTEROL INCREASED
     Dosage: 500 MG
  7. PLAVIX [Concomitant]
     Indication: STENT PLACEMENT
     Dosage: 75 MG
  8. DIOVAN [Concomitant]
     Indication: HYPERTENSION
     Dosage: 320 MG
  9. MULTAQ [Suspect]
     Indication: ATRIAL FIBRILLATION
     Dosage: 100 MG
  10. ASPIRIN [Concomitant]
     Indication: PROPHYLAXIS
     Dosage: 81 MG
  11. METOPROLOL TARTRATE [Concomitant]
     Indication: ATRIAL FIBRILLATION

REACTIONS (1)
  - VASCULITIS [None]
